FAERS Safety Report 9739070 (Version 1)
Quarter: 2013Q4

REPORT INFORMATION
  Report Type: Spontaneous
  Country: US (occurrence: US)
  Receive Date: 20131209
  Receipt Date: 20131209
  Transmission Date: 20140711
  Serious: Yes (Hospitalization)
  Sender: FDA-Public Use
  Company Number: US-BAYER-2013-148614

PATIENT
  Age: 22 Year
  Sex: Female
  Weight: 90.7 kg

DRUGS (4)
  1. YAZ [Suspect]
  2. TYLENOL [PARACETAMOL] [Concomitant]
     Dosage: 650 MG, UNK
  3. IBUPROFEN [Concomitant]
     Dosage: 600 MG, UNK
  4. VITAMIN C [Concomitant]

REACTIONS (2)
  - Deep vein thrombosis [None]
  - Pelvic venous thrombosis [None]
